FAERS Safety Report 23679397 (Version 1)
Quarter: 2024Q1

REPORT INFORMATION
  Report Type: Spontaneous
  Country: CA (occurrence: CA)
  Receive Date: 20240327
  Receipt Date: 20240327
  Transmission Date: 20240410
  Serious: Yes (Other)
  Sender: FDA-Public Use
  Company Number: CA-WOODWARD-2024-CA-001744

PATIENT
  Age: 41 Year
  Sex: Female

DRUGS (64)
  1. RABEPRAZOLE SODIUM [Suspect]
     Active Substance: RABEPRAZOLE SODIUM
     Indication: Migraine
     Dosage: 2.0 DOSAGE FORM (1 DOSAGE FORM, 1 IN 12 HOUR)
     Route: 048
     Dates: start: 20200213
  2. AMOXICILLIN [Suspect]
     Active Substance: AMOXICILLIN
     Dosage: 18.0 DOSAGE FORM (6 DOSAGE FORM, 1 IN 8 HOUR); 2.0 DOSAGE FORM (2 DOSAGE FORM, 1 IN 1 DAY); 6.0 DOSA
  3. AZITHROMYCIN [Suspect]
     Active Substance: AZITHROMYCIN
     Dosage: (500 MILLIGRAM(S))
     Dates: start: 20120523, end: 20120523
  4. BOTULINUM TOXIN TYPE A [Suspect]
     Active Substance: BOTULINUM TOXIN TYPE A
     Dosage: UNKNOWN DOSE AND FREQUENCY
     Dates: start: 20190816, end: 20190816
  5. CLARITHROMYCIN [Suspect]
     Active Substance: CLARITHROMYCIN
     Dosage: 1.0 DOSAGE FORM (1 DOSAGE FORM, 1 IN 1 DAY)(1 DOSAGE FORM); 2.0 DOSAGE FORM (2 DOSAGE FORM, 1 IN 1 D
     Dates: start: 20130130, end: 20230130
  6. CODEINE [Suspect]
     Active Substance: CODEINE
     Dosage: (40 MILLIGRAM(S))
     Route: 048
     Dates: start: 20130130, end: 20130130
  7. INDOMETHACIN [Suspect]
     Active Substance: INDOMETHACIN
     Dosage: 2.0 DOSAGE FORM (1 DOSAGE FORM, 1 IN 12 HOUR)(1 DOSAGE FORM)
     Route: 054
     Dates: start: 20200213
  8. LANSOPRAZOLE [Suspect]
     Active Substance: LANSOPRAZOLE
     Dosage: (30 MILLIGRAM(S))
     Route: 048
  9. METOCLOPRAMIDE HYDROCHLORIDE [Suspect]
     Active Substance: METOCLOPRAMIDE HYDROCHLORIDE
     Dosage: 10 MILLIGRAM(S)); (5 MILLIGRAM(S))
  10. MOMETASONE FUROATE [Suspect]
     Active Substance: MOMETASONE FUROATE
     Dosage: 4.0 DOSAGE FORM (2 DOSAGE FORM, 1 IN 12 HOUR)
     Dates: start: 20190725
  11. RIZATRIPTAN BENZOATE [Suspect]
     Active Substance: RIZATRIPTAN BENZOATE
     Dosage: 10.0 MILLIGRAM(S) (10 MILLIGRAM(S), 1 IN 1 DAY); 1.0 DOSAGE FORM (1 DOSAGE FORM, 1 IN 1 DAY)
  12. ESOMEPRAZOLE MAGNESIUM [Suspect]
     Active Substance: ESOMEPRAZOLE MAGNESIUM
     Dosage: (40 MILLIGRAM(S))
     Route: 048
  13. ACETAMINOPHEN\BUTYLSCOPOLAMINE BROMIDE [Suspect]
     Active Substance: ACETAMINOPHEN\BUTYLSCOPOLAMINE BROMIDE
     Dosage: (10 MILLIGRAM(S))
  14. ALBUTEROL [Suspect]
     Active Substance: ALBUTEROL
     Dosage: 4.0 DOSAGE FORM (4 DOSAGE FORM, 1 IN 1 DAY)
  15. SERTRALINE HYDROCHLORIDE [Suspect]
     Active Substance: SERTRALINE HYDROCHLORIDE
     Dosage: (50 MILLIGRAM(S))
  16. SUMATRIPTAN [Suspect]
     Active Substance: SUMATRIPTAN
     Dosage: UNKNOWN DOSE AND FREQUENCY
  17. SUMATRIPTAN SUCCINATE [Suspect]
     Active Substance: SUMATRIPTAN SUCCINATE
     Dosage: (100 MILLIGRAM(S))
  18. DULOXETINE [Suspect]
     Active Substance: DULOXETINE
     Dosage: (60 MILLIGRAM(S))
  19. TOPIRAMATE [Suspect]
     Active Substance: TOPIRAMATE
     Dosage: (25 MILLIGRAM(S))
  20. VENLAFAXINE HYDROCHLORIDE [Suspect]
     Active Substance: VENLAFAXINE HYDROCHLORIDE
     Dosage: (150 MILLIGRAM(S))
  21. ZOPICLONE [Suspect]
     Active Substance: ZOPICLONE
     Dosage: 1.0 DOSAGE FORM (1 DOSAGE FORM, 1 IN 1 DAY)(5 MILLIGRAM(S))(1 DOSAGE FORM)
     Dates: start: 20120512, end: 20120707
  22. ZOLMITRIPTAN [Suspect]
     Active Substance: ZOLMITRIPTAN
     Dosage: UNKNOWN DOSE AND FREQUENCY
     Route: 048
  23. AMOXICILLIN TRIHYDRATE [Suspect]
     Active Substance: AMOXICILLIN
     Dosage: (2 DOSAGE FORM)
  24. PREDNISONE [Suspect]
     Active Substance: PREDNISONE
     Dosage: 2.0 DOSAGE FORM (2 DOSAGE FORM, 1 IN 1 DAY)
     Route: 048
  25. DEXAMETHASONE [Suspect]
     Active Substance: DEXAMETHASONE
     Dosage: 1.0 DOSAGE FORM (1 DOSAGE FORM, 1 IN 1 DAY)(1 DOSAGE FORM)(2 MILLIGRAM(S)); 2.0 MILLIGRAM(S) (2 MILL
     Route: 048
     Dates: start: 20180618, end: 20180618
  26. DULOXETINE [Suspect]
     Active Substance: DULOXETINE
     Dosage: (60 MILLIGRAM(S))
     Route: 048
  27. TRIMETHOPRIM [Suspect]
     Active Substance: TRIMETHOPRIM
     Dosage: UNKNOWN DOSE AND FREQUENCY
     Route: 048
  28. FLUCONAZOLE [Suspect]
     Active Substance: FLUCONAZOLE
     Dosage: (40 MILLIGRAM(S)); 1.0 DOSAGE FORM (1 DOSAGE FORM, 1 IN 1 DAY)(1 DOSAGE FORM)
     Dates: start: 20180424, end: 20180424
  29. HYDROMORPHONE HYDROCHLORIDE [Suspect]
     Active Substance: HYDROMORPHONE HYDROCHLORIDE
     Dosage: 2.0 DOSAGE FORM (1 DOSAGE FORM, 1 IN 12 HOUR)(1 DOSAGE FORM)
     Dates: start: 20200213
  30. INDOMETHACIN [Suspect]
     Active Substance: INDOMETHACIN
     Dosage: (1 DOSAGE FORM)
     Route: 054
  31. TRAMADOL HYDROCHLORIDE [Suspect]
     Active Substance: TRAMADOL HYDROCHLORIDE
  32. ESCITALOPRAM [Suspect]
     Active Substance: ESCITALOPRAM OXALATE
     Dosage: (40 MILLIGRAM(S)); (10 MILLIGRAM(S))
     Route: 048
  33. METOCLOPRAMIDE [Suspect]
     Active Substance: METOCLOPRAMIDE
     Dosage: UNKNOWN DOSE AND FREQUENCY
  34. CLOTRIMAZOLE [Suspect]
     Active Substance: CLOTRIMAZOLE
     Dosage: UNKNOWN DOSE
  35. ACETAMINOPHEN\DIPHENHYDRAMINE HYDROCHLORIDE [Suspect]
     Active Substance: ACETAMINOPHEN\DIPHENHYDRAMINE HYDROCHLORIDE
     Dosage: UNKNOWN DOSE
  36. CYMBALTA [Concomitant]
     Active Substance: DULOXETINE HYDROCHLORIDE
     Dosage: 1.0 DOSAGE FORM (1 DOSAGE FORM, 1 IN 1 DAY)
  37. LISINOPRIL [Concomitant]
     Active Substance: LISINOPRIL
     Dosage: 2.0 DOSAGE FORM (2 DOSAGE FORM, 1 IN 1 DAY); 1.0 DOSAGE FORM (1 DOSAGE FORM, 1 IN 1 DAY)
     Route: 048
  38. CEFUROXIME AXETIL [Concomitant]
     Active Substance: CEFUROXIME AXETIL
     Dosage: 1.0 DOSAGE FORM (1 DOSAGE FORM, 1 IN 1 DAY); (2 DOSAGE FORM); 2.0 DOSAGE FORM (2 DOSAGE FORM, 1 IN 1
  39. ACETAMINOPHEN\CODEINE PHOSPHATE [Concomitant]
     Active Substance: ACETAMINOPHEN\CODEINE PHOSPHATE
     Dosage: (1 IN 1 DAY)
  40. CEPHALEXIN [Concomitant]
     Active Substance: CEPHALEXIN
     Dosage: 1.0 DOSAGE FORM (1 DOSAGE FORM, 1 IN 1 DAY)
  41. DANAZOL [Concomitant]
     Active Substance: DANAZOL
     Dosage: 1.0 DOSAGE FORM (1 DOSAGE FORM, 1 IN 1 DAY)
     Route: 048
  42. CIPROFLOXACIN [Suspect]
     Active Substance: CIPROFLOXACIN
     Dosage: 500.0 MILLIGRAM(S) (500 MILLIGRAM(S), 1 IN 1 DAY); 2.0 DOSAGE FORM (1 DOSAGE FORM, 1 IN 12 HOUR); 2.
     Route: 048
     Dates: start: 20170930, end: 20170930
  43. FERROUS FUMARATE [Concomitant]
     Active Substance: FERROUS FUMARATE
     Dosage: (300 MILLIGRAM(S))
  44. FLUOXETINE [Concomitant]
     Active Substance: FLUOXETINE HYDROCHLORIDE
     Dosage: (20 MILLIGRAM(S))
  45. FLUTICASONE [Concomitant]
     Active Substance: FLUTICASONE
     Dosage: 2.0 DOSAGE FORM (2 DOSAGE FORM, 1 IN 1 DAY)
  46. FROVA [Concomitant]
     Active Substance: FROVATRIPTAN SUCCINATE
     Dosage: 1.0 DOSAGE FORM (1 DOSAGE FORM, 1 IN 1 DAY)
  47. MACROBID [Concomitant]
     Active Substance: NITROFURANTOIN\NITROFURANTOIN MONOHYDRATE
     Dosage: 2.0 DOSAGE FORM (1 DOSAGE FORM, 2 IN 1 DAY); (100 MILLIGRAM(S))
  48. POLYETHYLENE GLYCOLS [Concomitant]
     Active Substance: POLYETHYLENE GLYCOLS
     Dosage: 1.0 DOSAGE FORM (1 DOSAGE FORM, 1 IN 1 DAY)
  49. METOCLOPRAMIDE [Concomitant]
     Active Substance: METOCLOPRAMIDE
     Dosage: (1 DOSAGE FORM)
  50. METRONIDAZOLE [Concomitant]
     Active Substance: METRONIDAZOLE
     Dosage: (5 MILLIGRAM(S))
  51. MORPHINE SULFATE [Concomitant]
     Active Substance: MORPHINE SULFATE
     Dosage: 1.0 DOSAGE FORM (1 DOSAGE FORM, 1 IN 1 DAY)
  52. NAPROXEN [Concomitant]
     Active Substance: NAPROXEN
     Dosage: 1.0 DOSAGE FORM (1 DOSAGE FORM, 1 IN 1 DAY)
  53. LISINOPRIL [Suspect]
     Active Substance: LISINOPRIL
     Dosage: 1.0 DOSAGE FORM (1 DOSAGE FORM, 1 IN 1 DAY); 2.0 DOSAGE FORM (2 DOSAGE FORM, 1 IN 1 DAY)
     Route: 048
  54. NASONEX [Concomitant]
     Active Substance: MOMETASONE FUROATE
     Dosage: 2.0 DOSAGE FORM (2 DOSAGE FORM, 1 IN 1 DAY)
  55. OSELTAMIVIR [Concomitant]
     Active Substance: OSELTAMIVIR
     Dosage: 1.0 DOSAGE FORM (1 DOSAGE FORM, 1 IN 1 DAY)
  56. PANTOPRAZOLE SODIUM [Concomitant]
     Active Substance: PANTOPRAZOLE SODIUM
     Dosage: (1 DOSAGE FORM)
  57. SULFATRIM [Concomitant]
     Active Substance: SULFAMETHOXAZOLE\TRIMETHOPRIM
     Dosage: 2.0 DOSAGE FORM (1 DOSAGE FORM, 2 IN 1 DAY)
  58. ALLOPURINOL [Concomitant]
     Active Substance: ALLOPURINOL
     Dosage: (25 MILLIGRAM(S))
     Route: 048
  59. AMOXICILLIN TRIHYDRATE [Concomitant]
     Active Substance: AMOXICILLIN
     Dosage: 84.0 DOSAGE FORM (28 DOSAGE FORM, 1 IN 8 HOUR)
  60. CEFUROXIME SODIUM [Concomitant]
     Active Substance: CEFUROXIME SODIUM
     Dosage: UNKNOWN DOSE
  61. ELAVIL [Concomitant]
     Active Substance: AMITRIPTYLINE HYDROCHLORIDE
     Dosage: UNKNOWN DOSE
  62. PROPRANOLOL [Suspect]
     Active Substance: PROPRANOLOL HYDROCHLORIDE
     Dosage: (80 MILLIGRAM(S)); (40 MILLIGRAM(S))
  63. TRAMADOL HYDROCHLORIDE [Suspect]
     Active Substance: TRAMADOL HYDROCHLORIDE
     Dosage: UNKNOWN DOSE AND FREQUENCY
     Route: 048
  64. ACETAMINOPHEN [Suspect]
     Active Substance: ACETAMINOPHEN
     Dosage: (10 MILLIGRAM(S))
     Route: 048

REACTIONS (8)
  - Dysphonia [Unknown]
  - Swollen tongue [Recovered/Resolved with Sequelae]
  - Hypersensitivity [Unknown]
  - Swelling face [Unknown]
  - Headache [Unknown]
  - Angioedema [Unknown]
  - Drug ineffective [Recovered/Resolved with Sequelae]
  - Off label use [Recovered/Resolved with Sequelae]
